FAERS Safety Report 9803545 (Version 1)
Quarter: 2014Q1

REPORT INFORMATION
  Report Type: Spontaneous
  Country: US (occurrence: US)
  Receive Date: 20140108
  Receipt Date: 20140108
  Transmission Date: 20141002
  Serious: No
  Sender: FDA-Public Use
  Company Number: US-GLAXOSMITHKLINE-A1006066A

PATIENT
  Age: 73 Year
  Sex: Male

DRUGS (3)
  1. LOVAZA [Suspect]
     Indication: BLOOD TRIGLYCERIDES INCREASED
     Dosage: 2CAP TWICE PER DAY
     Route: 048
     Dates: start: 20121205, end: 20121208
  2. ATENOLOL [Concomitant]
  3. LOVASTATIN [Concomitant]

REACTIONS (3)
  - Gout [Recovered/Resolved]
  - Pain in extremity [Unknown]
  - Local swelling [Unknown]
